FAERS Safety Report 4601064-2 (Version None)
Quarter: 2005Q1

REPORT INFORMATION
  Report Type: 
  Country: None (occurrence: None)
  Receive Date: 20050127
  Receipt Date: 20041112
  Transmission Date: 20050727
  Serious: No
  Sender: FDA-Public Use
  Company Number: USA041183953

PATIENT
  Age: 13 Year
  Sex: Male

DRUGS (2)
  1. HUMATROPE [Suspect]
     Indication: GROWTH RETARDATION
     Dates: start: 20010101
  2. STRATTERA [Suspect]
     Indication: DISTURBANCE IN ATTENTION
     Dosage: 25 MG AT BEDTIME
     Dates: start: 20041011

REACTIONS (3)
  - DISTURBANCE IN ATTENTION [None]
  - HEADACHE [None]
  - HYPERSOMNIA [None]
